FAERS Safety Report 8248645-5 (Version None)
Quarter: 2012Q1

REPORT INFORMATION
  Report Type: 
  Country: None (occurrence: None)
  Receive Date: 20120331
  Receipt Date: 20120320
  Transmission Date: 20120608
  Serious: Yes (Hospitalization)
  Sender: FDA-Public Use
  Company Number: GB-AMGEN-GBRCT2012018696

PATIENT
  Age: 43 Year
  Sex: Female
  Weight: 183 kg

DRUGS (6)
  1. TOLTERODINE TARTRATE [Concomitant]
     Dosage: UNK UNK, UNK
  2. ETANERCEPT [Suspect]
     Indication: PRODUCT USED FOR UNKNOWN INDICATION
     Dosage: 50 MG, QWK
     Dates: start: 20100615
  3. VERAPAMIL [Concomitant]
     Dosage: UNK
     Dates: start: 20110316
  4. FLECAINIDE ACETATE [Concomitant]
     Dosage: UNK
     Dates: start: 20110316
  5. DEPO-PROVERA [Concomitant]
     Dosage: UNK
     Dates: start: 20100207
  6. CITALOPRAM HYDROBROMIDE [Concomitant]
     Dosage: UNK
     Dates: start: 20100207

REACTIONS (1)
  - ATRIAL FIBRILLATION [None]
